FAERS Safety Report 24798250 (Version 1)
Quarter: 2025Q1

REPORT INFORMATION
  Report Type: Spontaneous
  Country: CH (occurrence: CH)
  Receive Date: 20250102
  Receipt Date: 20250102
  Transmission Date: 20250408
  Serious: Yes (Hospitalization)
  Sender: JOHNSON AND JOHNSON
  Company Number: None

PATIENT
  Age: 81 Year
  Sex: Male

DRUGS (8)
  1. RISPERDAL [Suspect]
     Active Substance: RISPERIDONE
     Indication: Product used for unknown indication
     Dosage: RICEVUTE DUE DOSI
     Route: 048
     Dates: start: 20241122, end: 20241123
  2. PANTOZOL [Suspect]
     Active Substance: PANTOPRAZOLE SODIUM
     Indication: Product used for unknown indication
     Dosage: ASSUNTE 4 DOSI
     Route: 048
     Dates: start: 20241122, end: 20241125
  3. AMOXICILLIN\CLAVULANATE POTASSIUM [Suspect]
     Active Substance: AMOXICILLIN\CLAVULANATE POTASSIUM
     Indication: Respiratory syncytial virus infection
     Route: 048
     Dates: start: 20241120
  4. CLOMETHIAZOLE [Suspect]
     Active Substance: CLOMETHIAZOLE
     Indication: Product used for unknown indication
     Dosage: ASSUNTE DUE DOSI
     Route: 048
     Dates: start: 20241122, end: 20241123
  5. CLARITHROMYCIN [Suspect]
     Active Substance: CLARITHROMYCIN
     Indication: Respiratory syncytial virus infection
     Route: 048
     Dates: start: 20241121, end: 20241125
  6. MEMANTINE HYDROCHLORIDE [Suspect]
     Active Substance: MEMANTINE HYDROCHLORIDE
     Indication: Product used for unknown indication
     Dosage: UNA SOLA DOSE
     Route: 048
     Dates: start: 20241124, end: 20241124
  7. ARICEPT [Suspect]
     Active Substance: DONEPEZIL HYDROCHLORIDE
     Indication: Product used for unknown indication
     Dosage: ASSUNTE TRE DOSI
     Route: 048
     Dates: start: 20241122, end: 20241124
  8. ASPIRIN [Suspect]
     Active Substance: ASPIRIN
     Indication: Product used for unknown indication
     Dosage: ASSUNTE 4 DOSI
     Route: 048
     Dates: start: 20241122, end: 20241125

REACTIONS (3)
  - Product prescribing error [Recovered/Resolved]
  - Medication error [Recovered/Resolved]
  - Confusional state [Unknown]

NARRATIVE: CASE EVENT DATE: 20241120
